FAERS Safety Report 13805895 (Version 1)
Quarter: 2017Q3

REPORT INFORMATION
  Report Type: Spontaneous
  Country: US (occurrence: US)
  Receive Date: 20170728
  Receipt Date: 20170728
  Transmission Date: 20171127
  Serious: Yes (Hospitalization)
  Sender: FDA-Public Use
  Company Number: US-BAYER-2017-140740

PATIENT
  Sex: Female

DRUGS (1)
  1. MIRALAX [Suspect]
     Active Substance: POLYETHYLENE GLYCOL 3350
     Indication: GASTROINTESTINAL DISORDER
     Dosage: 1 CAP FULL
     Route: 065

REACTIONS (5)
  - Product use in unapproved indication [Unknown]
  - Flatulence [None]
  - Dyspnoea [Unknown]
  - Infrequent bowel movements [Unknown]
  - Abdominal distension [None]
